FAERS Safety Report 14665529 (Version 4)
Quarter: 2020Q3

REPORT INFORMATION
  Report Type: Report from Study
  Country: AU (occurrence: AU)
  Receive Date: 20180321
  Receipt Date: 20180717
  Transmission Date: 20201104
  Serious: Yes (Hospitalization, Other)
  Sender: FDA-Public Use
  Company Number: AU-ASTRAZENECA-2018SE32980

PATIENT
  Age: 46 Year
  Sex: Male
  Weight: 130.4 kg

DRUGS (11)
  1. MEDI4736 [Suspect]
     Active Substance: DURVALUMAB
     Indication: NEOPLASM
     Route: 042
     Dates: start: 20180417
  2. PARACETAMOL [Concomitant]
     Active Substance: ACETAMINOPHEN
     Indication: PAIN IN EXTREMITY
     Route: 048
     Dates: start: 201610
  3. NAPROSYN [Concomitant]
     Active Substance: NAPROXEN
     Indication: PAIN IN EXTREMITY
     Route: 048
     Dates: start: 20171111
  4. MEDI4736 [Suspect]
     Active Substance: DURVALUMAB
     Indication: NEOPLASM
     Route: 042
     Dates: start: 20180222
  5. OXYCODONE [Concomitant]
     Active Substance: OXYCODONE
     Indication: PAIN IN EXTREMITY
     Route: 048
     Dates: start: 201610
  6. SERTRALINE [Concomitant]
     Active Substance: SERTRALINE HYDROCHLORIDE
     Indication: ANXIETY
     Route: 048
     Dates: start: 201610
  7. AMP?514. [Suspect]
     Active Substance: AMP-514
     Indication: NEOPLASM
     Route: 042
     Dates: start: 20180417
  8. AMP?514. [Suspect]
     Active Substance: AMP-514
     Indication: NEOPLASM
     Route: 042
     Dates: start: 20180222
  9. TARGIN [Concomitant]
     Active Substance: NALOXONE HYDROCHLORIDE\OXYCODONE HYDROCHLORIDE
     Indication: PAIN IN EXTREMITY
     Dosage: 30/15 MG
     Route: 048
     Dates: start: 201610
  10. KOREAN GINSENG [Concomitant]
     Indication: GENERAL PHYSICAL CONDITION
     Route: 048
     Dates: start: 201711
  11. ESOMEPRAZOLE. [Concomitant]
     Active Substance: ESOMEPRAZOLE MAGNESIUM
     Indication: GASTROOESOPHAGEAL REFLUX DISEASE
     Route: 048
     Dates: start: 201607

REACTIONS (2)
  - Aphasia [Recovered/Resolved]
  - Encephalitis autoimmune [Recovered/Resolved]

NARRATIVE: CASE EVENT DATE: 20180309
